FAERS Safety Report 15631747 (Version 5)
Quarter: 2019Q1

REPORT INFORMATION
  Report Type: Spontaneous
  Country: JP (occurrence: JP)
  Receive Date: 20181119
  Receipt Date: 20190314
  Transmission Date: 20190417
  Serious: Yes (Hospitalization, Other)
  Sender: FDA-Public Use
  Company Number: JP-GLAXOSMITHKLINE-JP2018JPN206953

PATIENT
  Age: 13 Year
  Sex: Female
  Weight: 48 kg

DRUGS (11)
  1. TRANEXAMIC ACID. [Concomitant]
     Active Substance: TRANEXAMIC ACID
     Dosage: UNK
     Dates: start: 20181110
  2. LAMICTAL [Suspect]
     Active Substance: LAMOTRIGINE
     Indication: PARTIAL SEIZURES
     Dosage: 7 MG, QD
     Route: 048
     Dates: start: 20181030, end: 20181112
  3. AMOXICILLIN HYDRATE [Concomitant]
     Active Substance: AMOXICILLIN
     Dosage: UNK
     Dates: start: 20181112, end: 20181112
  4. FEXOFENADINE [Concomitant]
     Active Substance: FEXOFENADINE\FEXOFENADINE HYDROCHLORIDE
     Indication: PYREXIA
     Dosage: UNK
     Dates: start: 20181110
  5. E KEPPRA [Suspect]
     Active Substance: LEVETIRACETAM
     Indication: PARTIAL SEIZURES
     Dosage: 1500 MG, BID
     Route: 048
     Dates: start: 20180521, end: 20180527
  6. PREDONINE [Concomitant]
     Active Substance: PREDNISOLONE
     Dosage: 10 MG, 1D
     Dates: start: 20181117, end: 20181119
  7. E KEPPRA [Suspect]
     Active Substance: LEVETIRACETAM
     Dosage: 500 MG, BID
     Dates: start: 20180528
  8. AMOXICILLIN HYDRATE [Concomitant]
     Active Substance: AMOXICILLIN
     Dosage: UNK
     Dates: start: 20181110, end: 201811
  9. CALONAL [Concomitant]
     Active Substance: ACETAMINOPHEN
     Dosage: UNK
     Dates: start: 20181110
  10. PREDONINE [Concomitant]
     Active Substance: PREDNISOLONE
     Indication: DRUG ERUPTION
     Dosage: 20 MG, 1D
     Dates: start: 20181113, end: 20181116
  11. PREDONINE [Concomitant]
     Active Substance: PREDNISOLONE
     Dosage: 5 MG, 1D
     Dates: start: 20181120, end: 20181122

REACTIONS (14)
  - Conjunctival hyperaemia [Recovering/Resolving]
  - Platelet count decreased [Recovering/Resolving]
  - Erythema [Unknown]
  - Hepatic function abnormal [Recovering/Resolving]
  - Erythema of eyelid [Unknown]
  - Coating in mouth [Unknown]
  - Decreased appetite [Unknown]
  - Tonsillar hypertrophy [Unknown]
  - Drug eruption [Recovering/Resolving]
  - White blood cell count decreased [Recovering/Resolving]
  - Ocular hyperaemia [Unknown]
  - Rash maculo-papular [Unknown]
  - Pyrexia [Unknown]
  - Lymphadenopathy [Unknown]

NARRATIVE: CASE EVENT DATE: 201811
